FAERS Safety Report 15931269 (Version 1)
Quarter: 2019Q1

REPORT INFORMATION
  Report Type: Spontaneous
  Country: DK (occurrence: DK)
  Receive Date: 20190207
  Receipt Date: 20190207
  Transmission Date: 20190417
  Serious: Yes (Other)
  Sender: FDA-Public Use
  Company Number: DK-AUROBINDO-AUR-APL-2019-006191

PATIENT

DRUGS (2)
  1. LAMOTRIGINE. [Suspect]
     Active Substance: LAMOTRIGINE
     Indication: PRODUCT USED FOR UNKNOWN INDICATION
     Dosage: UNK
     Route: 065
  2. PANODIL [Interacting]
     Active Substance: ACETAMINOPHEN
     Indication: NECK PAIN
     Dosage: UNK
     Route: 065

REACTIONS (2)
  - Seizure [Unknown]
  - Drug interaction [Unknown]
